FAERS Safety Report 14844563 (Version 1)
Quarter: 2018Q2

REPORT INFORMATION
  Report Type: Spontaneous
  Country: BE (occurrence: BE)
  Receive Date: 20180503
  Receipt Date: 20180503
  Transmission Date: 20180711
  Serious: Yes (Other)
  Sender: FDA-Public Use
  Company Number: PHHY2018BE077479

PATIENT
  Sex: Female

DRUGS (1)
  1. DOXYCYCLINE. [Suspect]
     Active Substance: DOXYCYCLINE
     Indication: PRODUCT USED FOR UNKNOWN INDICATION
     Dosage: 100 MG, QD
     Route: 065
     Dates: start: 20171121, end: 20171123

REACTIONS (5)
  - Arthralgia [Unknown]
  - Heart rate increased [Unknown]
  - Insomnia [Unknown]
  - Myalgia [Unknown]
  - Retinal artery thrombosis [Unknown]

NARRATIVE: CASE EVENT DATE: 20171203
